FAERS Safety Report 15635350 (Version 1)
Quarter: 2018Q4

REPORT INFORMATION
  Report Type: Spontaneous
  Country: US (occurrence: US)
  Receive Date: 20181120
  Receipt Date: 20181120
  Transmission Date: 20190205
  Serious: No
  Sender: FDA-Public Use
  Company Number: US-ALKEM LABORATORIES LIMITED-US-ALKEM-2018-07465

PATIENT
  Sex: Female

DRUGS (1)
  1. OLMESARTAN [Suspect]
     Active Substance: OLMESARTAN
     Indication: PRODUCT USED FOR UNKNOWN INDICATION
     Dosage: 40 MG, QD
     Route: 065

REACTIONS (6)
  - Oropharyngeal pain [Unknown]
  - Blood pressure abnormal [Unknown]
  - Dry mouth [Unknown]
  - Cough [Unknown]
  - Vision blurred [Unknown]
  - Pruritus [Unknown]
